FAERS Safety Report 24917156 (Version 3)
Quarter: 2025Q4

REPORT INFORMATION
  Report Type: Spontaneous
  Country: US (occurrence: US)
  Receive Date: 20250203
  Receipt Date: 20251210
  Transmission Date: 20260118
  Serious: No
  Sender: INCYTE
  Company Number: US-EVENT-001244

PATIENT
  Age: 5 Year

DRUGS (2)
  1. OPZELURA [Suspect]
     Active Substance: RUXOLITINIB PHOSPHATE
     Indication: Vitiligo
     Dosage: UNK, BID
     Route: 065
  2. OPZELURA [Suspect]
     Active Substance: RUXOLITINIB PHOSPHATE
     Dosage: UNK, BID

REACTIONS (2)
  - Off label use [Unknown]
  - Product physical consistency issue [Unknown]
